FAERS Safety Report 6092749-2 (Version None)
Quarter: 2009Q1

REPORT INFORMATION
  Report Type: 
  Country: None (occurrence: None)
  Receive Date: 20090225
  Receipt Date: 20090216
  Transmission Date: 20090719
  Serious: Yes (Hospitalization, Disabling)
  Sender: FDA-Public Use
  Company Number: JP-JNJFOC-20090202518

PATIENT
  Sex: Female

DRUGS (26)
  1. CRAVIT [Suspect]
     Indication: UPPER RESPIRATORY TRACT INFLAMMATION
     Route: 048
  2. SERENASE [Suspect]
     Indication: DRUG USE FOR UNKNOWN INDICATION
     Route: 065
  3. TAMIFLU [Suspect]
     Indication: DRUG USE FOR UNKNOWN INDICATION
     Dosage: 2 IN 1 DAY
     Route: 065
  4. SHAKUYAKU-KANZO-TO [Concomitant]
     Route: 065
  5. ACINON [Concomitant]
     Route: 065
  6. ZYRTEC [Concomitant]
     Route: 065
  7. POLLAKISU [Concomitant]
     Route: 065
  8. NITROL [Concomitant]
     Route: 065
  9. BEZATOL SR [Concomitant]
     Route: 065
  10. BIOFERMIN R [Concomitant]
     Route: 065
  11. FRANDOL [Concomitant]
     Route: 065
  12. UNSPECIFIED MEDICATION [Concomitant]
     Route: 065
  13. DEPAS [Concomitant]
     Route: 065
  14. HOKUNALIN [Concomitant]
     Route: 065
  15. BROMHEXINE HYDROCHLORIDE [Concomitant]
     Route: 065
  16. TRIMETAZIDINE HYDROCHLORIDE [Concomitant]
     Route: 065
  17. SIGMART [Concomitant]
     Route: 065
  18. OMEPRAL [Concomitant]
     Route: 065
  19. TAGAMET [Concomitant]
     Route: 065
  20. ALDACTONE [Concomitant]
     Route: 065
  21. ADALAT CC [Concomitant]
     Route: 065
  22. LAMISIL [Concomitant]
     Route: 065
  23. MUCOSOLVAN [Concomitant]
     Route: 065
  24. UNSPECIFIED MEDICATION [Concomitant]
     Route: 065
  25. MUCODYNE [Concomitant]
     Route: 065
  26. CLOPERASTINE HYDROCHLORIDE [Concomitant]
     Route: 065

REACTIONS (2)
  - CONFUSIONAL STATE [None]
  - NEUROLEPTIC MALIGNANT SYNDROME [None]
